FAERS Safety Report 19407132 (Version 1)
Quarter: 2021Q2

REPORT INFORMATION
  Report Type: Spontaneous
  Country: CA (occurrence: CA)
  Receive Date: 20210612
  Receipt Date: 20210612
  Transmission Date: 20210717
  Serious: Yes (Congenital Anomaly, Other)
  Sender: FDA-Public Use
  Company Number: CA-TEVA-2021-CA-1920600

PATIENT
  Age: 6 Month
  Sex: Female
  Weight: 3 kg

DRUGS (105)
  1. TEVA?DULOXETINE [Suspect]
     Active Substance: DULOXETINE
     Route: 064
  2. TEVA?DULOXETINE [Suspect]
     Active Substance: DULOXETINE
     Dosage: 90 MILLIGRAM DAILY;
     Route: 064
  3. TEVA?DULOXETINE [Suspect]
     Active Substance: DULOXETINE
     Route: 064
  4. TEVA?DULOXETINE [Suspect]
     Active Substance: DULOXETINE
     Route: 064
  5. TEVA?DULOXETINE [Suspect]
     Active Substance: DULOXETINE
     Route: 063
  6. DOMPERIDONE [Suspect]
     Active Substance: DOMPERIDONE
     Route: 064
  7. DOCUSATE SODIUM. [Suspect]
     Active Substance: DOCUSATE SODIUM
     Route: 063
  8. CYCLOBENZAPRINE. [Suspect]
     Active Substance: CYCLOBENZAPRINE
     Indication: MATERNAL EXPOSURE TIMING UNSPECIFIED
     Route: 048
  9. CYCLOBENZAPRINE. [Suspect]
     Active Substance: CYCLOBENZAPRINE
     Route: 048
  10. METHYLPHENIDATE. [Suspect]
     Active Substance: METHYLPHENIDATE
     Dosage: 36 MILLIGRAM DAILY;
     Route: 064
  11. METHYLPHENIDATE. [Suspect]
     Active Substance: METHYLPHENIDATE
     Route: 063
  12. LEVOTHYROXINE. [Suspect]
     Active Substance: LEVOTHYROXINE
     Indication: FOETAL EXPOSURE DURING PREGNANCY
     Route: 048
  13. URSODEOXYCHOLIC ACID [Suspect]
     Active Substance: URSODIOL
     Route: 064
  14. TEVA?DULOXETINE [Suspect]
     Active Substance: DULOXETINE
     Dosage: 90 MILLIGRAM DAILY;
     Route: 064
  15. TEVA?DULOXETINE [Suspect]
     Active Substance: DULOXETINE
     Route: 063
  16. TEVA?DULOXETINE [Suspect]
     Active Substance: DULOXETINE
     Dosage: 90 MILLIGRAM DAILY;
     Route: 064
  17. TEVA?DULOXETINE [Suspect]
     Active Substance: DULOXETINE
     Route: 064
  18. DOCUSATE SODIUM. [Suspect]
     Active Substance: DOCUSATE SODIUM
     Route: 064
  19. CYCLOBENZAPRINE. [Suspect]
     Active Substance: CYCLOBENZAPRINE
     Indication: PRODUCT USED FOR UNKNOWN INDICATION
     Route: 064
  20. OMEPRAZOLE. [Suspect]
     Active Substance: OMEPRAZOLE
     Indication: MATERNAL EXPOSURE TIMING UNSPECIFIED
     Route: 048
  21. METHYLPHENIDATE. [Suspect]
     Active Substance: METHYLPHENIDATE
     Route: 063
  22. METHYLPHENIDATE. [Suspect]
     Active Substance: METHYLPHENIDATE
     Route: 063
  23. FERROUS SULFATE. [Suspect]
     Active Substance: FERROUS SULFATE
     Route: 064
  24. LEVOTHYROXINE. [Suspect]
     Active Substance: LEVOTHYROXINE
     Indication: MATERNAL EXPOSURE TIMING UNSPECIFIED
     Route: 064
  25. LEVOTHYROXINE. [Suspect]
     Active Substance: LEVOTHYROXINE
     Route: 064
  26. URSODEOXYCHOLIC ACID [Suspect]
     Active Substance: URSODIOL
     Route: 064
  27. URSODEOXYCHOLIC ACID [Suspect]
     Active Substance: URSODIOL
     Route: 064
  28. TEVA?DULOXETINE [Suspect]
     Active Substance: DULOXETINE
     Dosage: 90 MILLIGRAM DAILY;
     Route: 064
  29. TEVA?DULOXETINE [Suspect]
     Active Substance: DULOXETINE
     Dosage: 90 MILLIGRAM DAILY;
     Route: 064
  30. TEVA?DULOXETINE [Suspect]
     Active Substance: DULOXETINE
     Route: 064
  31. TEVA?DULOXETINE [Suspect]
     Active Substance: DULOXETINE
     Route: 063
  32. TEVA?DULOXETINE [Suspect]
     Active Substance: DULOXETINE
     Route: 063
  33. TEVA?DULOXETINE [Suspect]
     Active Substance: DULOXETINE
     Route: 064
  34. DOMPERIDONE [Suspect]
     Active Substance: DOMPERIDONE
     Route: 048
  35. DOCUSATE SODIUM. [Suspect]
     Active Substance: DOCUSATE SODIUM
     Route: 048
  36. DOCUSATE SODIUM. [Suspect]
     Active Substance: DOCUSATE SODIUM
     Route: 064
  37. DOCUSATE SODIUM. [Suspect]
     Active Substance: DOCUSATE SODIUM
     Route: 048
  38. CYCLOBENZAPRINE. [Suspect]
     Active Substance: CYCLOBENZAPRINE
     Route: 064
  39. METHYLPHENIDATE. [Suspect]
     Active Substance: METHYLPHENIDATE
     Indication: ATTENTION DEFICIT HYPERACTIVITY DISORDER
     Route: 048
  40. FERROUS SULFATE. [Suspect]
     Active Substance: FERROUS SULFATE
     Indication: MATERNAL EXPOSURE TIMING UNSPECIFIED
     Route: 064
  41. INSULIN [Suspect]
     Active Substance: INSULIN NOS
     Route: 064
  42. LEVOTHYROXINE. [Suspect]
     Active Substance: LEVOTHYROXINE
     Route: 048
  43. URSODEOXYCHOLIC ACID [Suspect]
     Active Substance: URSODIOL
     Indication: FOETAL EXPOSURE DURING PREGNANCY
     Route: 064
  44. TEVA?DULOXETINE [Suspect]
     Active Substance: DULOXETINE
     Dosage: 90 MILLIGRAM DAILY;
     Route: 064
  45. TEVA?DULOXETINE [Suspect]
     Active Substance: DULOXETINE
     Route: 063
  46. TEVA?DULOXETINE [Suspect]
     Active Substance: DULOXETINE
     Dosage: 90 MILLIGRAM DAILY;
     Route: 064
  47. TEVA?DULOXETINE [Suspect]
     Active Substance: DULOXETINE
     Dosage: 90 MILLIGRAM DAILY;
     Route: 064
  48. TEVA?DULOXETINE [Suspect]
     Active Substance: DULOXETINE
     Route: 063
  49. DOCUSATE SODIUM. [Suspect]
     Active Substance: DOCUSATE SODIUM
     Indication: FOETAL EXPOSURE DURING PREGNANCY
     Route: 063
  50. CYCLOBENZAPRINE. [Suspect]
     Active Substance: CYCLOBENZAPRINE
     Route: 048
  51. OMEPRAZOLE. [Suspect]
     Active Substance: OMEPRAZOLE
     Indication: PRODUCT USED FOR UNKNOWN INDICATION
     Route: 064
  52. METHYLPHENIDATE. [Suspect]
     Active Substance: METHYLPHENIDATE
     Indication: FOETAL EXPOSURE DURING PREGNANCY
     Dosage: 36 MILLIGRAM DAILY;
     Route: 064
  53. METHYLPHENIDATE. [Suspect]
     Active Substance: METHYLPHENIDATE
     Dosage: 36 MILLIGRAM DAILY;
     Route: 064
  54. FERROUS SULFATE. [Suspect]
     Active Substance: FERROUS SULFATE
     Indication: PRODUCT USED FOR UNKNOWN INDICATION
     Route: 048
  55. URSODEOXYCHOLIC ACID [Suspect]
     Active Substance: URSODIOL
     Indication: MATERNAL EXPOSURE TIMING UNSPECIFIED
     Route: 064
  56. TEVA?DULOXETINE [Suspect]
     Active Substance: DULOXETINE
     Indication: FOETAL EXPOSURE DURING PREGNANCY
     Route: 064
  57. TEVA?DULOXETINE [Suspect]
     Active Substance: DULOXETINE
     Route: 063
  58. TEVA?DULOXETINE [Suspect]
     Active Substance: DULOXETINE
     Route: 064
  59. TEVA?DOCUSATE SODIUM [Suspect]
     Active Substance: DOCUSATE SODIUM
     Indication: FOETAL EXPOSURE DURING PREGNANCY
     Route: 064
  60. DOMPERIDONE [Suspect]
     Active Substance: DOMPERIDONE
     Indication: LACTATION DISORDER
     Route: 064
  61. DOMPERIDONE [Suspect]
     Active Substance: DOMPERIDONE
     Indication: FOETAL EXPOSURE DURING PREGNANCY
     Route: 048
  62. DOMPERIDONE [Suspect]
     Active Substance: DOMPERIDONE
     Route: 048
  63. DOCUSATE SODIUM. [Suspect]
     Active Substance: DOCUSATE SODIUM
     Route: 048
  64. OMEPRAZOLE. [Suspect]
     Active Substance: OMEPRAZOLE
     Route: 064
  65. METHYLPHENIDATE. [Suspect]
     Active Substance: METHYLPHENIDATE
     Indication: MATERNAL EXPOSURE TIMING UNSPECIFIED
     Route: 048
  66. METHYLPHENIDATE. [Suspect]
     Active Substance: METHYLPHENIDATE
     Route: 064
  67. METHYLPHENIDATE. [Suspect]
     Active Substance: METHYLPHENIDATE
     Route: 064
  68. LEVOTHYROXINE. [Suspect]
     Active Substance: LEVOTHYROXINE
     Route: 048
  69. TEVA?DULOXETINE [Suspect]
     Active Substance: DULOXETINE
     Indication: MATERNAL EXPOSURE TIMING UNSPECIFIED
     Dosage: 90 MILLIGRAM DAILY;
     Route: 064
  70. TEVA?DULOXETINE [Suspect]
     Active Substance: DULOXETINE
     Indication: ATTENTION DEFICIT HYPERACTIVITY DISORDER
     Dosage: 90 MILLIGRAM DAILY;
     Route: 064
  71. TEVA?DULOXETINE [Suspect]
     Active Substance: DULOXETINE
     Route: 064
  72. TEVA?DULOXETINE [Suspect]
     Active Substance: DULOXETINE
     Route: 064
  73. DOMPERIDONE [Suspect]
     Active Substance: DOMPERIDONE
     Indication: MATERNAL EXPOSURE TIMING UNSPECIFIED
     Route: 064
  74. DOCUSATE SODIUM. [Suspect]
     Active Substance: DOCUSATE SODIUM
     Indication: PRODUCT USED FOR UNKNOWN INDICATION
     Route: 063
  75. DOCUSATE SODIUM. [Suspect]
     Active Substance: DOCUSATE SODIUM
     Route: 064
  76. CYCLOBENZAPRINE. [Suspect]
     Active Substance: CYCLOBENZAPRINE
     Indication: FOETAL EXPOSURE DURING PREGNANCY
     Route: 064
  77. METHYLPHENIDATE. [Suspect]
     Active Substance: METHYLPHENIDATE
     Route: 063
  78. FERROUS SULFATE. [Suspect]
     Active Substance: FERROUS SULFATE
     Route: 064
  79. INSULIN [Suspect]
     Active Substance: INSULIN NOS
     Indication: FOETAL EXPOSURE DURING PREGNANCY
     Route: 064
  80. INSULIN [Suspect]
     Active Substance: INSULIN NOS
     Route: 064
  81. URSODEOXYCHOLIC ACID [Suspect]
     Active Substance: URSODIOL
     Route: 064
  82. TEVA?DULOXETINE [Suspect]
     Active Substance: DULOXETINE
     Indication: DEPRESSION
     Route: 063
  83. TEVA?DULOXETINE [Suspect]
     Active Substance: DULOXETINE
     Route: 064
  84. TEVA?DULOXETINE [Suspect]
     Active Substance: DULOXETINE
     Route: 063
  85. TEVA?DOCUSATE SODIUM [Suspect]
     Active Substance: DOCUSATE SODIUM
     Indication: MATERNAL EXPOSURE TIMING UNSPECIFIED
     Route: 064
  86. DOCUSATE SODIUM. [Suspect]
     Active Substance: DOCUSATE SODIUM
     Indication: MATERNAL EXPOSURE TIMING UNSPECIFIED
     Route: 064
  87. METHYLPHENIDATE. [Suspect]
     Active Substance: METHYLPHENIDATE
     Indication: PRODUCT USED FOR UNKNOWN INDICATION
     Route: 048
  88. METHYLPHENIDATE. [Suspect]
     Active Substance: METHYLPHENIDATE
     Route: 064
  89. METHYLPHENIDATE. [Suspect]
     Active Substance: METHYLPHENIDATE
     Route: 064
  90. METHYLPHENIDATE. [Suspect]
     Active Substance: METHYLPHENIDATE
     Dosage: 36 MILLIGRAM DAILY;
     Route: 064
  91. FERROUS SULFATE. [Suspect]
     Active Substance: FERROUS SULFATE
     Indication: FOETAL EXPOSURE DURING PREGNANCY
     Route: 064
  92. FERROUS SULFATE. [Suspect]
     Active Substance: FERROUS SULFATE
     Route: 048
  93. FERROUS SULFATE. [Suspect]
     Active Substance: FERROUS SULFATE
     Route: 064
  94. INSULIN [Suspect]
     Active Substance: INSULIN NOS
     Indication: MATERNAL EXPOSURE TIMING UNSPECIFIED
     Route: 064
  95. LEVOTHYROXINE. [Suspect]
     Active Substance: LEVOTHYROXINE
     Indication: PRODUCT USED FOR UNKNOWN INDICATION
     Route: 064
  96. TEVA?DULOXETINE [Suspect]
     Active Substance: DULOXETINE
     Indication: PRODUCT USED FOR UNKNOWN INDICATION
     Route: 064
  97. TEVA?DULOXETINE [Suspect]
     Active Substance: DULOXETINE
     Route: 063
  98. TEVA?DULOXETINE [Suspect]
     Active Substance: DULOXETINE
     Route: 064
  99. TEVA?DULOXETINE [Suspect]
     Active Substance: DULOXETINE
     Route: 063
  100. TEVA?DULOXETINE [Suspect]
     Active Substance: DULOXETINE
     Route: 064
  101. DOCUSATE SODIUM. [Suspect]
     Active Substance: DOCUSATE SODIUM
     Route: 064
  102. DOCUSATE SODIUM. [Suspect]
     Active Substance: DOCUSATE SODIUM
     Route: 064
  103. OMEPRAZOLE. [Suspect]
     Active Substance: OMEPRAZOLE
     Route: 048
  104. METHYLPHENIDATE. [Suspect]
     Active Substance: METHYLPHENIDATE
     Route: 048
  105. FERROUS SULFATE. [Suspect]
     Active Substance: FERROUS SULFATE
     Route: 048

REACTIONS (8)
  - Lung cyst [Unknown]
  - Somnolence [Unknown]
  - Pulmonary malformation [Unknown]
  - Exposure via breast milk [Unknown]
  - Respiratory tract malformation [Unknown]
  - Pneumonia [Unknown]
  - Foetal exposure during pregnancy [Unknown]
  - Maternal exposure during breast feeding [Unknown]
